FAERS Safety Report 7683954-X (Version None)
Quarter: 2011Q3

REPORT INFORMATION
  Report Type: 
  Country: None (occurrence: None)
  Receive Date: 20110815
  Receipt Date: 20110808
  Transmission Date: 20111222
  Serious: Yes (Hospitalization)
  Sender: FDA-Public Use
  Company Number: CA-ROCHE-795398

PATIENT
  Sex: Male
  Weight: 77 kg

DRUGS (11)
  1. BEVACIZUMAB [Suspect]
     Dosage: FREQUENCY: ON DAY 1 EVERY 21 DAYS
     Route: 042
     Dates: start: 20110727
  2. OXALIPLATIN [Suspect]
     Dosage: FREQUENCY: ON DAY 2 EVERY 21 DAYS
     Route: 042
     Dates: start: 20110727
  3. FOLIC ACID [Concomitant]
     Dates: start: 20010101
  4. ASPIRIN [Concomitant]
     Dates: start: 19820101
  5. INDAPAMIDE [Concomitant]
     Dates: start: 20060101
  6. HIBITANE [Concomitant]
     Dates: start: 20060101
  7. ACEBUTOLOL [Concomitant]
     Dates: start: 20010101
  8. PERINDOPRIL [Concomitant]
     Dates: start: 20090101
  9. CAPECITABINE [Suspect]
     Dosage: FREQUENCY: DAY 2-15 EVERY 21 DAYS
     Route: 048
     Dates: start: 20110728
  10. IRINOTECAN HCL [Suspect]
     Dosage: FREQUENCY: ON DAY 1 EVERY 21 DAYS
     Route: 042
     Dates: start: 20110727
  11. LIPITOR [Concomitant]
     Dates: start: 19960101

REACTIONS (1)
  - COLITIS [None]
